FAERS Safety Report 6200507-0 (Version None)
Quarter: 2009Q2

REPORT INFORMATION
  Report Type: 
  Country: None (occurrence: None)
  Receive Date: 20090522
  Receipt Date: 20090519
  Transmission Date: 20091009
  Serious: Yes (Hospitalization)
  Sender: FDA-Public Use
  Company Number: CA-ABBOTT-09P-028-0574685-00

PATIENT
  Age: 37 Year
  Sex: Male

DRUGS (1)
  1. BIAXIN XL [Suspect]
     Indication: BRONCHITIS

REACTIONS (2)
  - HEART RATE ABNORMAL [None]
  - MYOCARDIAL INFARCTION [None]
